FAERS Safety Report 19160161 (Version 1)
Quarter: 2021Q2

REPORT INFORMATION
  Report Type: Spontaneous
  Country: NL (occurrence: NL)
  Receive Date: 20210420
  Receipt Date: 20210420
  Transmission Date: 20210717
  Serious: Yes (Other)
  Sender: FDA-Public Use
  Company Number: NL-PFIZER INC-2021398570

PATIENT
  Age: 65 Year
  Sex: Male
  Weight: 82 kg

DRUGS (5)
  1. ATORVASTATIN CALCIUM. [Suspect]
     Active Substance: ATORVASTATIN CALCIUM
     Indication: HYPERCHOLESTEROLAEMIA
     Dosage: 1 DF, 1X/DAY
     Dates: start: 201502, end: 20200917
  2. ACETYLSALICYLIC ACID [Concomitant]
     Active Substance: ASPIRIN
     Dosage: 80 MG
  3. METOPROLOL SUCCINATE. [Concomitant]
     Active Substance: METOPROLOL SUCCINATE
     Dosage: 25 MG
  4. EZETIMIBE. [Concomitant]
     Active Substance: EZETIMIBE
     Dosage: 10 MG
  5. RAMIPRIL. [Concomitant]
     Active Substance: RAMIPRIL
     Dosage: 5 MG

REACTIONS (5)
  - Delirium [Recovered/Resolved]
  - Balance disorder [Unknown]
  - Chills [Unknown]
  - Malaise [Recovered/Resolved]
  - Amnesia [Unknown]

NARRATIVE: CASE EVENT DATE: 20181018
